FAERS Safety Report 17123020 (Version 1)
Quarter: 2019Q4

REPORT INFORMATION
  Report Type: Spontaneous
  Country: DE (occurrence: DE)
  Receive Date: 20191206
  Receipt Date: 20191206
  Transmission Date: 20200122
  Serious: Yes (Other)
  Sender: FDA-Public Use
  Company Number: NVSC2019DE053246

PATIENT
  Age: 31 Year
  Sex: Female
  Weight: 152 kg

DRUGS (14)
  1. METOPROLOL. [Concomitant]
     Active Substance: METOPROLOL
     Indication: HYPERTENSION
     Dosage: UNK UNK, UNKNOWN
     Route: 048
     Dates: start: 2017
  2. ASTONIN H [Concomitant]
     Indication: PRIMARY ADRENAL INSUFFICIENCY
     Dosage: 2 DF, QD (1-1-0-0)
     Route: 048
     Dates: start: 201708
  3. FENISTIL [Concomitant]
     Active Substance: DIMETHINDENE
     Indication: HYPERSENSITIVITY
     Dosage: UNK UNK, UNKNOWN (IF NEEDED)
     Route: 048
  4. AMOXICILLIN AND CLAVULANATE POTASSIUM [Suspect]
     Active Substance: AMOXICILLIN\CLAVULANATE POTASSIUM
     Indication: SINUSITIS
     Dosage: 1 DF, TID (3 TIMES A DAY (1-1-1-0))
     Route: 048
     Dates: start: 20190913
  5. CELESTAMINE [Concomitant]
     Active Substance: BETAMETHASONE\DEXCHLORPHENIRAMINE MALEATE
     Indication: HYPERSENSITIVITY
     Dosage: UNK UNK, UNKNOWN (IF NEEDED)
     Route: 048
  6. HYDROCORTISONE. [Concomitant]
     Active Substance: HYDROCORTISONE
     Indication: HORMONE REPLACEMENT THERAPY
     Dosage: 10 MG, UNKNOWN
     Route: 048
     Dates: start: 201705
  7. CIMZIA [Concomitant]
     Active Substance: CERTOLIZUMAB PEGOL
     Indication: RHEUMATOID ARTHRITIS
     Dosage: UNK UNK, QD (14 DAILY)
     Route: 065
  8. DESLORATADINA [Concomitant]
     Active Substance: DESLORATADINE
     Indication: HYPERSENSITIVITY
     Dosage: 1 DF, QD (ONCE A DAY)
     Route: 048
     Dates: start: 20190426
  9. EPINEPHRINE. [Concomitant]
     Active Substance: EPINEPHRINE
     Indication: HYPERSENSITIVITY
     Dosage: UNK UNK, UNKNOWN (IF NEEDED)
     Route: 065
  10. MEDIKINET [Concomitant]
     Active Substance: METHYLPHENIDATE
     Indication: ATTENTION DEFICIT/HYPERACTIVITY DISORDER
     Dosage: 4 DF, QD (2-1-1-0)
     Route: 048
     Dates: start: 201310
  11. HYDROMORPHONE [Concomitant]
     Active Substance: HYDROMORPHONE
     Indication: PAIN
     Dosage: UNK (DELAYED RELEASE TABLETS)
     Route: 048
     Dates: start: 20190305
  12. SALBUHEXAL [Concomitant]
     Active Substance: ALBUTEROL
     Indication: ASTHMA
     Dosage: UNK UNK, UNKNOWN (2 PRESSURES)
     Route: 065
     Dates: start: 20190814
  13. RAMIPRIL. [Suspect]
     Active Substance: RAMIPRIL
     Indication: HYPERTONIA
     Dosage: 5 MG, UNKNOWN
     Route: 048
     Dates: start: 201809
  14. FENISTIL [Concomitant]
     Active Substance: DIMETHINDENE
     Dosage: 2 DF, QD (0-0-0-2)
     Route: 048

REACTIONS (7)
  - Syncope [Recovered/Resolved]
  - Vulvovaginal mycotic infection [Unknown]
  - Product use in unapproved indication [Unknown]
  - Fatigue [Recovering/Resolving]
  - Diarrhoea [Unknown]
  - Abdominal pain upper [Unknown]
  - Nausea [Unknown]

NARRATIVE: CASE EVENT DATE: 20190916
